FAERS Safety Report 15969681 (Version 3)
Quarter: 2019Q1

REPORT INFORMATION
  Report Type: Spontaneous
  Country: US (occurrence: US)
  Receive Date: 20190215
  Receipt Date: 20190320
  Transmission Date: 20190418
  Serious: Yes (Other)
  Sender: FDA-Public Use
  Company Number: US-BAUSCH-BL-2019-004824

PATIENT
  Age: 60 Year
  Sex: Female
  Weight: 83.99 kg

DRUGS (2)
  1. ASPIRIN. [Concomitant]
     Active Substance: ASPIRIN
     Indication: PRODUCT USED FOR UNKNOWN INDICATION
     Dosage: LOW-DOSE
     Route: 048
  2. PLENVU [Suspect]
     Active Substance: ASCORBIC ACID\POLYETHYLENE GLYCOL 3350\POTASSIUM CHLORIDE\SODIUM ASCORBATE\SODIUM CHLORIDE\SODIUM SULFATE
     Indication: BOWEL PREPARATION
     Dosage: 1 DOSE IN THE EVENING BEFORE THE COLONOSCOPY
     Route: 048
     Dates: start: 20190211, end: 20190211

REACTIONS (7)
  - Weight increased [Recovering/Resolving]
  - Feeling cold [Recovering/Resolving]
  - Eye irritation [Recovering/Resolving]
  - Feeling abnormal [Recovering/Resolving]
  - Burning sensation [Recovered/Resolved]
  - Erythema [Recovering/Resolving]
  - Abnormal sensation in eye [Recovering/Resolving]

NARRATIVE: CASE EVENT DATE: 20190211
